FAERS Safety Report 9638713 (Version 3)
Quarter: 2013Q4

REPORT INFORMATION
  Report Type: Report from Study
  Country: ES (occurrence: ES)
  Receive Date: 20131022
  Receipt Date: 20131028
  Transmission Date: 20140711
  Serious: Yes (Other)
  Sender: FDA-Public Use
  Company Number: ES-SA-2013SA101833

PATIENT
  Age: 53 Year
  Sex: Female

DRUGS (20)
  1. DOCETAXEL [Suspect]
     Indication: BREAST CANCER METASTATIC
     Route: 065
     Dates: start: 20110427, end: 20110427
  2. DOCETAXEL [Suspect]
     Indication: BREAST CANCER METASTATIC
     Route: 065
     Dates: start: 20111125, end: 20111125
  3. DOCETAXEL [Suspect]
     Indication: BREAST CANCER METASTATIC
     Route: 065
     Dates: start: 20111216, end: 20111216
  4. DOCETAXEL [Suspect]
     Indication: BREAST CANCER METASTATIC
     Route: 065
     Dates: start: 20120104, end: 20120104
  5. DOCETAXEL [Suspect]
     Indication: BREAST CANCER METASTATIC
     Route: 065
     Dates: start: 20120127, end: 20120127
  6. DOCETAXEL [Suspect]
     Indication: BREAST CANCER METASTATIC
     Route: 065
     Dates: start: 20120217, end: 20120217
  7. DOCETAXEL [Suspect]
     Indication: BREAST CANCER METASTATIC
     Route: 065
     Dates: start: 20120309, end: 20120309
  8. DOCETAXEL [Suspect]
     Indication: BREAST CANCER METASTATIC
     Route: 065
     Dates: start: 20120330, end: 20120330
  9. DOCETAXEL [Suspect]
     Indication: BREAST CANCER METASTATIC
     Route: 065
     Dates: start: 20120420, end: 20120420
  10. DOCETAXEL [Suspect]
     Indication: BREAST CANCER METASTATIC
     Route: 065
  11. BLINDED THERAPY [Suspect]
     Indication: BREAST CANCER METASTATIC
     Route: 065
     Dates: start: 20110427, end: 20110427
  12. BLINDED THERAPY [Suspect]
     Indication: BREAST CANCER METASTATIC
     Route: 065
     Dates: start: 20111125, end: 20111125
  13. BLINDED THERAPY [Suspect]
     Indication: BREAST CANCER METASTATIC
     Route: 065
     Dates: start: 20111216, end: 20111216
  14. BLINDED THERAPY [Suspect]
     Indication: BREAST CANCER METASTATIC
     Route: 065
     Dates: start: 20120104, end: 20120104
  15. BLINDED THERAPY [Suspect]
     Indication: BREAST CANCER METASTATIC
     Route: 065
     Dates: start: 20120127, end: 20120127
  16. BLINDED THERAPY [Suspect]
     Indication: BREAST CANCER METASTATIC
     Route: 065
     Dates: start: 20120217, end: 20120217
  17. BLINDED THERAPY [Suspect]
     Indication: BREAST CANCER METASTATIC
     Route: 065
     Dates: start: 20120309, end: 20120309
  18. BLINDED THERAPY [Suspect]
     Indication: BREAST CANCER METASTATIC
     Route: 065
     Dates: start: 20120330, end: 20120330
  19. BLINDED THERAPY [Suspect]
     Indication: BREAST CANCER METASTATIC
     Route: 065
     Dates: start: 20120420, end: 20120420
  20. BLINDED THERAPY [Suspect]
     Indication: BREAST CANCER METASTATIC
     Route: 065

REACTIONS (1)
  - Underdose [Unknown]
